FAERS Safety Report 17602712 (Version 1)
Quarter: 2020Q1

REPORT INFORMATION
  Report Type: Spontaneous
  Country: CN (occurrence: CN)
  Receive Date: 20200330
  Receipt Date: 20200330
  Transmission Date: 20200409
  Serious: Yes (Other)
  Sender: FDA-Public Use
  Company Number: CN-APOPHARMA INC-2020AP009093

PATIENT
  Age: 11 Year
  Sex: Female
  Weight: 17.5 kg

DRUGS (1)
  1. FERRIPROX [Suspect]
     Active Substance: DEFERIPRONE
     Indication: MYELOFIBROSIS
     Dosage: 29 MG/KG, TID
     Route: 048
     Dates: start: 20190801, end: 20190915

REACTIONS (3)
  - Tachypnoea [Recovered/Resolved]
  - Dyspnoea [Recovered/Resolved]
  - Rash [Recovered/Resolved]

NARRATIVE: CASE EVENT DATE: 20190915
